FAERS Safety Report 10966628 (Version 1)
Quarter: 2015Q1

REPORT INFORMATION
  Report Type: Spontaneous
  Country: None (occurrence: None)
  Receive Date: 20150226
  Receipt Date: 20150226
  Transmission Date: 20150721
  Serious: No
  Sender: FDA-Public Use
  Company Number: TPA2010A05812

PATIENT
  Age: 69 Year
  Sex: Female
  Weight: 106.6 kg

DRUGS (2)
  1. ONGLYZA (ALL OTHER THERAPEUTIC PRODUCTS) [Concomitant]
  2. ULORIC [Suspect]
     Active Substance: FEBUXOSTAT
     Indication: GOUT
     Route: 048
     Dates: start: 201010

REACTIONS (1)
  - Gout [None]

NARRATIVE: CASE EVENT DATE: 2010
